FAERS Safety Report 22960444 (Version 2)
Quarter: 2024Q3

REPORT INFORMATION
  Report Type: Spontaneous
  Country: GB (occurrence: GB)
  Receive Date: 20230920
  Receipt Date: 20240808
  Transmission Date: 20241016
  Serious: Yes (Disabling)
  Sender: JOHNSON AND JOHNSON
  Company Number: GB-MHRA-MED-202309131553585350-RLQSD

PATIENT
  Age: 38 Year
  Sex: Female

DRUGS (4)
  1. PALIPERIDONE PALMITATE [Suspect]
     Active Substance: PALIPERIDONE PALMITATE
     Indication: Eating disorder
     Dosage: NUMBER OF SEPARATE DOSES, TOTAL OF FOUR INJECTIONS WITH TWO IN DECEMBER, ONE IN JANUARY AND ONE IN F
     Route: 030
     Dates: start: 20221215, end: 20230315
  2. PALIPERIDONE PALMITATE [Suspect]
     Active Substance: PALIPERIDONE PALMITATE
  3. PALIPERIDONE PALMITATE [Suspect]
     Active Substance: PALIPERIDONE PALMITATE
  4. ARIPIPRAZOLE [Suspect]
     Active Substance: ARIPIPRAZOLE

REACTIONS (9)
  - Gait disturbance [Not Recovered/Not Resolved]
  - Disturbance in attention [Not Recovered/Not Resolved]
  - Insomnia [Not Recovered/Not Resolved]
  - Apathy [Not Recovered/Not Resolved]
  - Anhedonia [Not Recovered/Not Resolved]
  - Off label use [Unknown]
  - Diarrhoea [Unknown]
  - Lethargy [Unknown]
  - Illiteracy [Not Recovered/Not Resolved]

NARRATIVE: CASE EVENT DATE: 20221215
